FAERS Safety Report 15760926 (Version 3)
Quarter: 2020Q4

REPORT INFORMATION
  Report Type: Spontaneous
  Country: US (occurrence: US)
  Receive Date: 20181226
  Receipt Date: 20201202
  Transmission Date: 20210113
  Serious: Yes (Hospitalization)
  Sender: FDA-Public Use
  Company Number: US-PFIZER INC-2018528782

PATIENT
  Age: 63 Year
  Sex: Female

DRUGS (1)
  1. XELJANZ XR [Suspect]
     Active Substance: TOFACITINIB CITRATE
     Dosage: 11 MG, UNK
     Dates: start: 201811, end: 201904

REACTIONS (6)
  - Fall [Unknown]
  - Impaired healing [Not Recovered/Not Resolved]
  - Drug ineffective [Unknown]
  - Head injury [Unknown]
  - Skin lesion [Not Recovered/Not Resolved]
  - Lymphoedema [Unknown]

NARRATIVE: CASE EVENT DATE: 201904
